FAERS Safety Report 5904248-6 (Version None)
Quarter: 2008Q4

REPORT INFORMATION
  Report Type: 
  Country: None (occurrence: None)
  Receive Date: 20081001
  Receipt Date: 20080923
  Transmission Date: 20090506
  Serious: Yes (Hospitalization, Other)
  Sender: FDA-Public Use
  Company Number: US-BAYER-200829670NA

PATIENT
  Age: 54 Year
  Sex: Male

DRUGS (1)
  1. LEUKINE [Suspect]
     Indication: LUNG NEOPLASM MALIGNANT
     Dates: start: 20080730

REACTIONS (2)
  - DYSPNOEA [None]
  - SYNCOPE [None]
